FAERS Safety Report 19252729 (Version 1)
Quarter: 2021Q2

REPORT INFORMATION
  Report Type: Spontaneous
  Country: US (occurrence: US)
  Receive Date: 20210512
  Receipt Date: 20210512
  Transmission Date: 20210717
  Serious: Yes (Hospitalization)
  Sender: FDA-Public Use
  Company Number: None

PATIENT
  Age: 69 Year
  Sex: Male

DRUGS (27)
  1. BREO ELLIPTA, [Concomitant]
  2. WARFARIN [Concomitant]
     Active Substance: WARFARIN
  3. POT CHLORIDE ER [Concomitant]
  4. COLACE [Concomitant]
     Active Substance: DOCUSATE SODIUM
  5. DOXYCYCL HYC [Concomitant]
  6. PEPO?BISMAL [Concomitant]
  7. AMBRISENTAN 5MG TAB [Suspect]
     Active Substance: AMBRISENTAN
     Indication: PULMONARY ARTERIAL HYPERTENSION
     Route: 048
     Dates: start: 20210224
  8. IPRATROPIUM/SOL ALBUTER [Concomitant]
  9. LEVOFLOXACIN. [Concomitant]
     Active Substance: LEVOFLOXACIN
  10. MIRALAX NF [Concomitant]
  11. MUCINEX ER [Concomitant]
  12. SILDENAFIL. [Concomitant]
     Active Substance: SILDENAFIL
  13. VENTOLN HFA [Concomitant]
  14. ALLOPURINOL. [Concomitant]
     Active Substance: ALLOPURINOL
  15. AMOXICILLIN. [Concomitant]
     Active Substance: AMOXICILLIN
  16. AZITHROMYCIN ANHYDROUS. [Concomitant]
     Active Substance: AZITHROMYCIN ANHYDROUS
  17. BROM/PSE/DM [Concomitant]
  18. DIVALPROEX DR [Concomitant]
     Active Substance: DIVALPROEX SODIUM
  19. LEVETIRACETA [Concomitant]
     Active Substance: LEVETIRACETAM
  20. LEVOTHROXIN [Concomitant]
  21. OMEPROZALE [Concomitant]
  22. FUROSEMIDE. [Concomitant]
     Active Substance: FUROSEMIDE
  23. SPIRVIA HANDIHLR [Concomitant]
  24. ALBUTEROL HFA [Concomitant]
     Active Substance: ALBUTEROL SULFATE
  25. ATORVASTATIN [Suspect]
     Active Substance: ATORVASTATIN
  26. DIVALPROEX ER [Concomitant]
     Active Substance: DIVALPROEX SODIUM
  27. SOTALOL HCL [Concomitant]
     Active Substance: SOTALOL

REACTIONS (2)
  - Chronic obstructive pulmonary disease [None]
  - Pneumonia [None]

NARRATIVE: CASE EVENT DATE: 20210419
